FAERS Safety Report 11265343 (Version 1)
Quarter: 2015Q3

REPORT INFORMATION
  Report Type: Spontaneous
  Country: US (occurrence: US)
  Receive Date: 20150713
  Receipt Date: 20150713
  Transmission Date: 20151125
  Serious: No
  Sender: FDA-Public Use
  Company Number: US-BIOGENIDEC-2015BI094019

PATIENT
  Age: 22 Year
  Sex: Male

DRUGS (3)
  1. INTERFERON BETA-1A [Concomitant]
     Active Substance: INTERFERON BETA-1A
  2. IBUPROFEN. [Concomitant]
     Active Substance: IBUPROFEN
     Indication: PAIN
  3. AVONEX [Suspect]
     Active Substance: INTERFERON BETA-1A
     Indication: MULTIPLE SCLEROSIS
     Route: 030
     Dates: start: 200509, end: 200708

REACTIONS (3)
  - Influenza [Unknown]
  - Muscle contractions involuntary [Unknown]
  - Myalgia [Unknown]
